FAERS Safety Report 6027931-3 (Version None)
Quarter: 2009Q1

REPORT INFORMATION
  Report Type: 
  Country: None (occurrence: None)
  Receive Date: 20090105
  Receipt Date: 20081229
  Transmission Date: 20090719
  Serious: Yes (Other)
  Sender: FDA-Public Use
  Company Number: PHHY2008BR33369

PATIENT
  Sex: Female
  Weight: 60 kg

DRUGS (3)
  1. EXELON [Suspect]
     Indication: DEMENTIA ALZHEIMER'S TYPE
     Dosage: 4.5 MG, BID
     Route: 048
  2. EXELON [Suspect]
     Dosage: 4.5 MG, BID
     Route: 048
  3. EXELON [Suspect]
     Dosage: 4.6 MG/DAY
     Route: 062
     Dates: start: 20080801

REACTIONS (8)
  - AGITATION [None]
  - ANXIETY [None]
  - APPLICATION SITE HYPERSENSITIVITY [None]
  - APPLICATION SITE PRURITUS [None]
  - DEMENTIA ALZHEIMER'S TYPE [None]
  - DERMATITIS CONTACT [None]
  - MEMORY IMPAIRMENT [None]
  - WOUND [None]
